FAERS Safety Report 23294661 (Version 1)
Quarter: 2023Q4

REPORT INFORMATION
  Report Type: Spontaneous
  Country: US (occurrence: None)
  Receive Date: 20231213
  Receipt Date: 20231213
  Transmission Date: 20240109
  Serious: Yes (Other)
  Sender: FDA-Public Use
  Company Number: None

PATIENT
  Age: 39 Year
  Sex: Male
  Weight: 79.2 kg

DRUGS (5)
  1. OMAVELOXOLONE [Suspect]
     Active Substance: OMAVELOXOLONE
     Indication: Friedreich^s ataxia
     Dosage: 150 MG DAILY ORAL?
     Route: 048
     Dates: start: 20230615, end: 20231031
  2. baclofen 15mg mg QAM, 20mg midday, 15mg QPM [Concomitant]
  3. APIXABAN [Concomitant]
     Active Substance: APIXABAN
  4. trazodone 25mg QHS PRN [Concomitant]
  5. carvedilol 25mg BID [Concomitant]

REACTIONS (1)
  - Ejaculation failure [None]

NARRATIVE: CASE EVENT DATE: 20231201
